FAERS Safety Report 15536444 (Version 1)
Quarter: 2018Q4

REPORT INFORMATION
  Report Type: Spontaneous
  Country: FR (occurrence: FR)
  Receive Date: 20181022
  Receipt Date: 20181022
  Transmission Date: 20190205
  Serious: Yes (Hospitalization)
  Sender: FDA-Public Use
  Company Number: FR-SUN PHARMACEUTICAL INDUSTRIES LTD-2018RR-188287

PATIENT
  Age: 75 Year
  Sex: Male

DRUGS (6)
  1. DOLIPRANE [Interacting]
     Active Substance: ACETAMINOPHEN
     Indication: PAIN
     Dosage: 500 MG, DAILY
     Route: 065
     Dates: start: 20180605, end: 20180610
  2. ACUPAN [Interacting]
     Active Substance: NEFOPAM HYDROCHLORIDE
     Indication: PAIN
     Dosage: MAXIMUM 4 AMPOULES PAR JOUR
     Route: 042
     Dates: start: 20180613, end: 20180620
  3. PREDNISONE. [Interacting]
     Active Substance: PREDNISONE
     Indication: PAIN
     Dosage: 60 MG, DAILY
     Route: 048
     Dates: start: 20180605, end: 20180610
  4. TRAMADOL. [Suspect]
     Active Substance: TRAMADOL
     Indication: PAIN
     Dosage: 200 MG, DAILY
     Route: 048
     Dates: start: 20180613, end: 20180620
  5. IXPRIM [Interacting]
     Active Substance: ACETAMINOPHEN\TRAMADOL HYDROCHLORIDE
     Indication: PAIN
     Dosage: 3 DF, DAILY
     Route: 048
     Dates: start: 20180605, end: 20180610
  6. PREVISCAN 20 MG, COMPRIME SECABLE [Interacting]
     Active Substance: FLUINDIONE
     Indication: CARDIAC VALVE PROSTHESIS USER
     Dosage: 25 MG, DAILY
     Route: 048
     Dates: start: 200512

REACTIONS (3)
  - Potentiating drug interaction [Recovered/Resolved]
  - Haematoma [Recovered/Resolved]
  - International normalised ratio increased [Recovered/Resolved]

NARRATIVE: CASE EVENT DATE: 20180605
